FAERS Safety Report 23379506 (Version 1)
Quarter: 2024Q1

REPORT INFORMATION
  Report Type: Report from Study
  Country: CA (occurrence: CA)
  Receive Date: 20240108
  Receipt Date: 20240108
  Transmission Date: 20240410
  Serious: Yes (Other)
  Sender: FDA-Public Use
  Company Number: CA-VER-202300552

PATIENT
  Age: 67 Year
  Sex: Male

DRUGS (3)
  1. TRIPTORELIN PAMOATE [Suspect]
     Active Substance: TRIPTORELIN PAMOATE
     Indication: Prostate cancer
     Dosage: (11.25 MG,3 M)??DRUG START: 19-DEC-2023
     Route: 030
     Dates: end: 20231219
  2. TRIPTORELIN PAMOATE [Suspect]
     Active Substance: TRIPTORELIN PAMOATE
     Indication: Prostate cancer
     Dosage: (11.25 MG,3 M)??START DATE: 19-SEP-2023
     Route: 030
     Dates: end: 20230919
  3. TRIPTORELIN PAMOATE [Suspect]
     Active Substance: TRIPTORELIN PAMOATE
     Indication: Prostate cancer
     Dosage: ONCE / 3 MONTHS.??DRUG START: 21-JUN-2023
     Route: 030
     Dates: end: 20230621

REACTIONS (5)
  - Rib fracture [Recovering/Resolving]
  - Fall [Recovering/Resolving]
  - Heart rate increased [Unknown]
  - Clavicle fracture [Recovering/Resolving]
  - Scapula fracture [Recovered/Resolved]

NARRATIVE: CASE EVENT DATE: 20230919
